FAERS Safety Report 7603313-5 (Version None)
Quarter: 2011Q3

REPORT INFORMATION
  Report Type: 
  Country: None (occurrence: None)
  Receive Date: 20110712
  Receipt Date: 20110629
  Transmission Date: 20111222
  Serious: Yes (Other)
  Sender: FDA-Public Use
  Company Number: PHHY2011US54140

PATIENT
  Sex: Female

DRUGS (2)
  1. EXJADE [Suspect]
     Dosage: 1000 MG, QD
     Route: 048
     Dates: start: 20110606
  2. CHEMOTHERAPEUTICS NOS [Concomitant]
     Indication: MYELODYSPLASTIC SYNDROME
     Dosage: UNK

REACTIONS (7)
  - DECREASED APPETITE [None]
  - CONTUSION [None]
  - CONSTIPATION [None]
  - DIARRHOEA [None]
  - HAEMORRHAGE [None]
  - PLATELET COUNT DECREASED [None]
  - FATIGUE [None]
